FAERS Safety Report 8041513-3 (Version None)
Quarter: 2012Q1

REPORT INFORMATION
  Report Type: 
  Country: None (occurrence: None)
  Receive Date: 20120112
  Receipt Date: 20120109
  Transmission Date: 20120608
  Serious: Yes (Hospitalization)
  Sender: FDA-Public Use
  Company Number: CN-PFIZER INC-2012006251

PATIENT

DRUGS (1)
  1. VIAGRA [Suspect]
     Dosage: UNK
     Route: 048
     Dates: start: 20120108

REACTIONS (4)
  - BACK PAIN [None]
  - OCULAR HYPERAEMIA [None]
  - EYE SWELLING [None]
  - VISION BLURRED [None]
